FAERS Safety Report 12299142 (Version 1)
Quarter: 2016Q2

REPORT INFORMATION
  Report Type: Report from Study
  Country: MX (occurrence: MX)
  Receive Date: 20160425
  Receipt Date: 20160425
  Transmission Date: 20160815
  Serious: Yes (Hospitalization, Other)
  Sender: FDA-Public Use
  Company Number: MX-AMGEN-MEXSL2016051775

PATIENT
  Age: 72 Year
  Sex: Male
  Weight: 56 kg

DRUGS (6)
  1. NEUPOGEN [Suspect]
     Active Substance: FILGRASTIM
     Indication: NON-HODGKIN^S LYMPHOMA STAGE II
     Dosage: 300 MCG, UNK
     Route: 065
  2. CYCLOPHOSPHAMIDE. [Concomitant]
     Active Substance: CYCLOPHOSPHAMIDE
     Indication: NON-HODGKIN^S LYMPHOMA STAGE II
     Dosage: UNK
  3. RITUXIMAB [Concomitant]
     Active Substance: RITUXIMAB
     Indication: NON-HODGKIN^S LYMPHOMA STAGE II
     Dosage: UNK
  4. VINCRISTINE [Concomitant]
     Active Substance: VINCRISTINE
     Indication: NON-HODGKIN^S LYMPHOMA STAGE II
     Dosage: UNK
  5. DOXORUBICIN [Concomitant]
     Active Substance: DOXORUBICIN
     Indication: NON-HODGKIN^S LYMPHOMA STAGE II
     Dosage: UNK
  6. PREDNISONE. [Concomitant]
     Active Substance: PREDNISONE
     Indication: NON-HODGKIN^S LYMPHOMA STAGE II
     Dosage: UNK

REACTIONS (1)
  - Febrile neutropenia [Recovering/Resolving]
